FAERS Safety Report 4803236-0 (Version None)
Quarter: 2005Q4

REPORT INFORMATION
  Report Type: 
  Country: None (occurrence: None)
  Receive Date: 20051013
  Receipt Date: 20050923
  Transmission Date: 20060501
  Serious: Yes (Hospitalization)
  Sender: FDA-Public Use
  Company Number: TRP_0460_2005

PATIENT
  Age: 59 Year
  Sex: Female
  Weight: 70.7611 kg

DRUGS (11)
  1. RIBASPHERE [Suspect]
     Indication: HEPATITIS C
     Dosage: DF PO
     Route: 048
     Dates: start: 20050208, end: 20050808
  2. PEG-INTRON [Suspect]
     Indication: HEPATITIS C
     Dosage: DF SC
     Route: 058
     Dates: start: 20050208, end: 20050808
  3. ATIVAN [Concomitant]
  4. BENICAR [Concomitant]
  5. FIORICET [Concomitant]
  6. MIRTAZAPINE [Concomitant]
  7. MORPHINE [Concomitant]
  8. PHENERGEN [Concomitant]
  9. RESTORIL [Concomitant]
  10. ZOLOFT [Concomitant]
  11. PHENOBARBITAL TAB [Concomitant]

REACTIONS (6)
  - HYPOAESTHESIA [None]
  - PLATELET COUNT DECREASED [None]
  - POOR PERIPHERAL CIRCULATION [None]
  - RED BLOOD CELL COUNT DECREASED [None]
  - SKIN DISCOLOURATION [None]
  - WHITE BLOOD CELL COUNT DECREASED [None]
